FAERS Safety Report 5838166-9 (Version None)
Quarter: 2008Q3

REPORT INFORMATION
  Report Type: 
  Country: None (occurrence: None)
  Receive Date: 20080808
  Receipt Date: 20080728
  Transmission Date: 20090109
  Serious: Yes (Hospitalization, Other)
  Sender: FDA-Public Use
  Company Number: GB-JNJFOC-20080706463

PATIENT
  Age: 73 Year
  Sex: Female
  Weight: 61 kg

DRUGS (11)
  1. REMICADE [Suspect]
     Indication: RHEUMATOID ARTHRITIS
     Route: 042
  2. METHOTREXATE [Concomitant]
  3. PREDNISOLONE [Concomitant]
  4. AMITRIPTYLINE HCL [Concomitant]
  5. CO-PROXAMOL [Concomitant]
  6. DIDRONEL [Concomitant]
  7. DIHYDROCODEINE [Concomitant]
  8. FOLIC ACID [Concomitant]
  9. FROBEN [Concomitant]
  10. OMEPRAZOLE [Concomitant]
  11. LEVOTHYROXINE SODIUM [Concomitant]

REACTIONS (2)
  - DIARRHOEA [None]
  - MALAISE [None]
